FAERS Safety Report 10210756 (Version 2)
Quarter: 2014Q2

REPORT INFORMATION
  Report Type: Spontaneous
  Country: FR (occurrence: FR)
  Receive Date: 20140602
  Receipt Date: 20140602
  Transmission Date: 20141212
  Serious: Yes (Hospitalization, Other)
  Sender: FDA-Public Use
  Company Number: PHHY2012FR055478

PATIENT
  Age: 74 Year
  Sex: Female

DRUGS (13)
  1. MINI-SINTROM [Suspect]
     Indication: ATRIAL FIBRILLATION
     Dosage: UNK UKN, UNK
     Route: 048
     Dates: start: 20120403, end: 20120425
  2. MINI-SINTROM [Suspect]
     Indication: ARRHYTHMIA
  3. ECONAZOLE SANDOZ [Suspect]
     Dosage: UNK UKN, UNK
     Dates: start: 20120403, end: 20120425
  4. CIPROFLOXACIN [Suspect]
     Dosage: 1 DF, BID
     Route: 048
     Dates: start: 20120402, end: 20120425
  5. TAZOCILLINE [Suspect]
     Dosage: UNK UKN, UNK
     Dates: start: 20120329, end: 20120402
  6. INEXIUM//ESOMEPRAZOLE SODIUM [Suspect]
     Dosage: UNK UKN, UNK
     Dates: start: 20120402
  7. CLAMOXYL [Suspect]
     Dosage: UNK UKN, UNK
     Dates: start: 20120402, end: 20120422
  8. AMIKLIN [Suspect]
     Indication: MEDIASTINITIS
     Dosage: UNK UKN, ONCE/SINGLE
     Dates: start: 20120329
  9. AMIKLIN [Suspect]
     Indication: PYREXIA
     Dosage: UNK UKN, ONCE/SINGLE
     Dates: start: 20120422
  10. CORDARONE [Concomitant]
     Indication: ARRHYTHMIA
     Dosage: UNK UKN, ONCE/SINGLE
     Dates: start: 20120326
  11. CORDARONE [Concomitant]
     Indication: ATRIAL FIBRILLATION
     Dosage: UNK UKN, ONCE/SINGLE
     Dates: start: 20120408
  12. LASILIX [Concomitant]
     Dosage: UNK UKN, UNK
     Dates: start: 20120408
  13. BACTRIM [Concomitant]
     Indication: TOXIC SKIN ERUPTION
     Dosage: UNK UKN, UNK
     Dates: start: 20120422

REACTIONS (15)
  - Acute generalised exanthematous pustulosis [Recovered/Resolved]
  - Rash macular [Unknown]
  - Rash pustular [Unknown]
  - Pruritus [Unknown]
  - Pyrexia [Unknown]
  - Rash [Unknown]
  - Skin exfoliation [Unknown]
  - Cheilitis [Unknown]
  - Arrhythmia [Recovered/Resolved]
  - Staphylococcal infection [Unknown]
  - International normalised ratio increased [Unknown]
  - Blood creatinine increased [Unknown]
  - Haemoglobin decreased [Unknown]
  - Oedema peripheral [Unknown]
  - Candida infection [Unknown]
